FAERS Safety Report 17431952 (Version 1)
Quarter: 2020Q1

REPORT INFORMATION
  Report Type: Spontaneous
  Country: US (occurrence: US)
  Receive Date: 20200218
  Receipt Date: 20200218
  Transmission Date: 20200409
  Serious: Yes (Hospitalization)
  Sender: FDA-Public Use
  Company Number: US-FRESENIUS KABI-FK202001666

PATIENT
  Sex: Female

DRUGS (2)
  1. METHYLPREDNISOLONE (MANUFACTURER UNKNOWN) [Suspect]
     Active Substance: METHYLPREDNISOLONE
     Indication: PROPHYLAXIS
     Route: 061
  2. GELATIN SPONGE, ABSORBABLE [Suspect]
     Active Substance: GELATIN
     Indication: PROPHYLAXIS
     Route: 061

REACTIONS (5)
  - Impaired healing [Unknown]
  - Dysphagia [Unknown]
  - Pharyngeal abscess [Unknown]
  - Oesophageal rupture [Unknown]
  - Postoperative wound infection [Unknown]
